FAERS Safety Report 7473192-8 (Version None)
Quarter: 2011Q2

REPORT INFORMATION
  Report Type: 
  Country: None (occurrence: None)
  Receive Date: 20110511
  Receipt Date: 20110324
  Transmission Date: 20111010
  Serious: Yes (Hospitalization)
  Sender: FDA-Public Use
  Company Number: A0919856A

PATIENT
  Sex: Female

DRUGS (2)
  1. TYKERB [Suspect]
     Dosage: 1250MG PER DAY
     Route: 048
     Dates: start: 20100701, end: 20110504
  2. XELODA [Concomitant]
     Dosage: 1800MG TWICE PER DAY
     Route: 065

REACTIONS (3)
  - HERPES ZOSTER [None]
  - BREAST CANCER METASTATIC [None]
  - BACK PAIN [None]
